FAERS Safety Report 12115021 (Version 1)
Quarter: 2016Q1

REPORT INFORMATION
  Report Type: Spontaneous
  Country: None (occurrence: None)
  Receive Date: 20160224
  Receipt Date: 20160224
  Transmission Date: 20160526
  Serious: Yes (Disabling, Other)
  Sender: FDA-Public Use
  Company Number: None

PATIENT
  Age: 34 Year
  Sex: Male
  Weight: 80.74 kg

DRUGS (3)
  1. ARMOUR THYROID [Suspect]
     Active Substance: THYROID, PORCINE
     Indication: HYPOTHYROIDISM
     Dosage: 2 PILLS DAILY TWICE DAILY TAKEN BY MOUTH
     Route: 048
  2. NATURE-THROID [Concomitant]
     Active Substance: THYROID, PORCINE
  3. DAILY MULTI VITAMIN [Concomitant]

REACTIONS (8)
  - Panic attack [None]
  - Product quality issue [None]
  - Heart rate increased [None]
  - Insomnia [None]
  - Memory impairment [None]
  - Anxiety [None]
  - Dyspnoea [None]
  - Activities of daily living impaired [None]

NARRATIVE: CASE EVENT DATE: 20160114
